FAERS Safety Report 9450812 (Version 2)
Quarter: 2013Q4

REPORT INFORMATION
  Report Type: Spontaneous
  Country: US (occurrence: US)
  Receive Date: 20130809
  Receipt Date: 20131007
  Transmission Date: 20140711
  Serious: Yes (Other)
  Sender: FDA-Public Use
  Company Number: US-ELI_LILLY_AND_COMPANY-US201307010354

PATIENT
  Age: 47 Year
  Sex: Male
  Weight: 80.73 kg

DRUGS (6)
  1. HUMALOG LISPRO [Suspect]
     Indication: TYPE 1 DIABETES MELLITUS
     Dosage: UNK, PRN
     Route: 058
  2. HUMALOG LISPRO [Suspect]
     Dosage: UNK, PRN
     Route: 058
  3. HUMALOG LISPRO [Suspect]
     Dosage: 35 U, QD
     Route: 058
     Dates: end: 20130730
  4. LISINOPRIL [Concomitant]
  5. APIDRA [Concomitant]
  6. GLUCOSE [Concomitant]

REACTIONS (10)
  - Weight decreased [Unknown]
  - Lung infection [Unknown]
  - Decreased appetite [Unknown]
  - Fatigue [Unknown]
  - Malaise [Unknown]
  - Hyperhidrosis [Unknown]
  - Blood glucose increased [Unknown]
  - Drug ineffective [Unknown]
  - Incorrect dose administered [Unknown]
  - Glycosylated haemoglobin increased [Unknown]
